FAERS Safety Report 19900438 (Version 1)
Quarter: 2021Q3

REPORT INFORMATION
  Report Type: Spontaneous
  Country: RU (occurrence: RU)
  Receive Date: 20210929
  Receipt Date: 20210929
  Transmission Date: 20211014
  Serious: Yes (Other)
  Sender: FDA-Public Use
  Company Number: RU-BAYER-2021A217084

PATIENT
  Sex: Male

DRUGS (1)
  1. STIVARGA [Suspect]
     Active Substance: REGORAFENIB
     Indication: COLORECTAL CANCER METASTATIC
     Dosage: 80 MG, UNK
     Route: 048

REACTIONS (5)
  - Biliary colic [None]
  - Shock [None]
  - Off label use [None]
  - Pain [None]
  - Loss of consciousness [None]
